FAERS Safety Report 10828202 (Version 3)
Quarter: 2016Q1

REPORT INFORMATION
  Report Type: Report from Study
  Country: PR (occurrence: PR)
  Receive Date: 20150219
  Receipt Date: 20160201
  Transmission Date: 20160525
  Serious: No
  Sender: FDA-Public Use
  Company Number: PR-ABBVIE-14P-131-1200511-00

PATIENT
  Sex: Male
  Weight: 65.38 kg

DRUGS (3)
  1. PANADOL [Concomitant]
     Active Substance: ACETAMINOPHEN
     Indication: PAIN
     Route: 048
  2. ULTRACET [Concomitant]
     Active Substance: ACETAMINOPHEN\TRAMADOL HYDROCHLORIDE
     Indication: PAIN
     Route: 048
  3. HUMIRA [Suspect]
     Active Substance: ADALIMUMAB
     Indication: CROHN^S DISEASE
     Route: 058
     Dates: start: 201310, end: 20131219

REACTIONS (4)
  - Inflammation [Recovered/Resolved]
  - Crohn^s disease [Unknown]
  - Feeling abnormal [Recovered/Resolved]
  - Drug ineffective [Not Recovered/Not Resolved]
